FAERS Safety Report 25239975 (Version 1)
Quarter: 2025Q2

REPORT INFORMATION
  Report Type: Spontaneous
  Country: US (occurrence: None)
  Receive Date: 20250425
  Receipt Date: 20250425
  Transmission Date: 20250717
  Serious: Yes (Life-Threatening)
  Sender: FDA-CTU
  Company Number: None

PATIENT
  Age: 74 Year
  Sex: Female
  Weight: 36.8 kg

DRUGS (3)
  1. PIPERACILLIN SODIUM\TAZOBACTAM SODIUM [Suspect]
     Active Substance: PIPERACILLIN SODIUM\TAZOBACTAM SODIUM
     Indication: Antibiotic therapy
     Route: 040
     Dates: start: 20250414, end: 20250414
  2. linezolid IVPB [Concomitant]
     Dates: start: 20250414, end: 20250414
  3. fluconazole IVPB [Concomitant]
     Dates: start: 20250414, end: 20250414

REACTIONS (5)
  - Tachycardia [None]
  - Blood pressure decreased [None]
  - Erythema [None]
  - Hypoxia [None]
  - Tachypnoea [None]

NARRATIVE: CASE EVENT DATE: 20250414
